FAERS Safety Report 16891809 (Version 2)
Quarter: 2019Q4

REPORT INFORMATION
  Report Type: Report from Study
  Country: US (occurrence: US)
  Receive Date: 20191007
  Receipt Date: 20191024
  Transmission Date: 20200122
  Serious: Yes (Hospitalization)
  Sender: FDA-Public Use
  Company Number: US-ACTELION-A-NJ2019-195296

PATIENT
  Sex: Female
  Weight: 133.79 kg

DRUGS (4)
  1. WARFARIN [Concomitant]
     Active Substance: WARFARIN
  2. OPSUMIT [Suspect]
     Active Substance: MACITENTAN
     Indication: PULMONARY ARTERIAL HYPERTENSION
     Dosage: 10 MG, QD
     Route: 048
  3. REMODULIN [Concomitant]
     Active Substance: TREPROSTINIL
  4. TADALAFIL. [Concomitant]
     Active Substance: TADALAFIL

REACTIONS (5)
  - Hospitalisation [Unknown]
  - Paraesthesia [Unknown]
  - Peripheral swelling [Not Recovered/Not Resolved]
  - Paraesthesia oral [Unknown]
  - Diarrhoea [Not Recovered/Not Resolved]
